FAERS Safety Report 16178693 (Version 1)
Quarter: 2019Q2

REPORT INFORMATION
  Report Type: Spontaneous
  Country: ES (occurrence: ES)
  Receive Date: 20190410
  Receipt Date: 20190410
  Transmission Date: 20190711
  Serious: No
  Sender: FDA-Public Use
  Company Number: ES-ALKEM LABORATORIES LIMITED-ES-ALKEM-2018-02401

PATIENT
  Age: 19 Year
  Sex: Male

DRUGS (9)
  1. CEFAZOLIN [Concomitant]
     Active Substance: CEFAZOLIN
     Indication: DEVICE RELATED INFECTION
  2. RITUXIMAB. [Concomitant]
     Active Substance: RITUXIMAB
     Indication: SYSTEMIC LUPUS ERYTHEMATOSUS
     Dosage: 615 MG, ONCE WEEKLY
     Route: 065
  3. METHYLPREDNISOLONE. [Concomitant]
     Active Substance: METHYLPREDNISOLONE
     Indication: SYSTEMIC LUPUS ERYTHEMATOSUS
     Dosage: 1 G, INITIALLY FOR 5 DAYS
     Route: 042
  4. QUETIAPINE FUMARATE. [Suspect]
     Active Substance: QUETIAPINE FUMARATE
     Indication: PRODUCT USED FOR UNKNOWN INDICATION
     Dosage: 200 TO 400 MG, QD
     Route: 065
  5. LEVETIRACETAM. [Concomitant]
     Active Substance: LEVETIRACETAM
     Indication: SEIZURE
     Dosage: 500 MG, UNK
     Route: 048
  6. CEFAZOLIN [Concomitant]
     Active Substance: CEFAZOLIN
     Indication: STAPHYLOCOCCAL INFECTION
     Dosage: 2 G, TID
     Route: 042
  7. RISPERIDONE. [Suspect]
     Active Substance: RISPERIDONE
     Indication: PRODUCT USED FOR UNKNOWN INDICATION
     Dosage: 3-6 MG, QD
     Route: 065
  8. CYCLOPHOSPHAMIDE. [Concomitant]
     Active Substance: CYCLOPHOSPHAMIDE
     Indication: SYSTEMIC LUPUS ERYTHEMATOSUS
     Dosage: 750 MG, FOR 1 CYCLE
     Route: 042
  9. CYCLOPHOSPHAMIDE. [Concomitant]
     Active Substance: CYCLOPHOSPHAMIDE
     Dosage: 500 MG, FOR 5 ADDITIONAL SESSIONS
     Route: 042

REACTIONS (4)
  - Salivary hypersecretion [Unknown]
  - Therapy non-responder [Unknown]
  - Drug intolerance [Unknown]
  - Akathisia [Unknown]
